FAERS Safety Report 8916737 (Version 3)
Quarter: 2013Q1

REPORT INFORMATION
  Report Type: Spontaneous
  Country: US (occurrence: US)
  Receive Date: 20121120
  Receipt Date: 20130206
  Transmission Date: 20140127
  Serious: Yes (Hospitalization, Other)
  Sender: FDA-Public Use
  Company Number: US-PFIZER INC-2012288269

PATIENT
  Age: 75 Year
  Sex: Female
  Weight: 51.7 kg

DRUGS (3)
  1. LYRICA [Suspect]
     Indication: PAIN
     Dosage: 25 MG, DAILY
     Dates: start: 20121012, end: 20121028
  2. LEVOTHYROXINE [Concomitant]
     Indication: THYROID DISORDER
     Dosage: 88 UG, DAILY
  3. CRESTOR [Concomitant]
     Indication: BLOOD CHOLESTEROL ABNORMAL
     Dosage: 10 MG, DAILY

REACTIONS (5)
  - Myocardial infarction [Recovered/Resolved]
  - Swelling [Unknown]
  - Dyspnoea [Unknown]
  - Pulmonary oedema [Recovered/Resolved]
  - Cardiac disorder [Unknown]
